FAERS Safety Report 4481374-2 (Version None)
Quarter: 2004Q3

REPORT INFORMATION
  Report Type: 
  Country: None (occurrence: None)
  Receive Date: 20040923
  Receipt Date: 20040616
  Transmission Date: 20050211
  Serious: No
  Sender: FDA-Public Use
  Company Number: USA031151453

PATIENT
  Age: 59 Year
  Sex: Female

DRUGS (2)
  1. FORTEO [Suspect]
     Indication: OSTEOPOROSIS
     Dates: start: 20030901
  2. PROTONIX [Concomitant]

REACTIONS (5)
  - ARTHRALGIA [None]
  - ARTHROPATHY [None]
  - INCREASED APPETITE [None]
  - PAIN IN EXTREMITY [None]
  - WEIGHT DECREASED [None]
